FAERS Safety Report 7191338-6 (Version None)
Quarter: 2010Q4

REPORT INFORMATION
  Report Type: 
  Country: None (occurrence: None)
  Receive Date: 20101221
  Receipt Date: 20101221
  Transmission Date: 20110411
  Serious: No
  Sender: FDA-Public Use
  Company Number: None

PATIENT
  Age: 49 Year
  Sex: Male
  Weight: 88.4514 kg

DRUGS (2)
  1. PROPOXYPHENE HYDROCHLORIDE [Suspect]
     Indication: JOINT INJURY
     Dosage: 800MG TWICE A DAY
     Dates: start: 20100918, end: 20101118
  2. PROPOXYPHENE HYDROCHLORIDE [Suspect]
     Indication: NECK INJURY
     Dosage: 800MG TWICE A DAY
     Dates: start: 20100918, end: 20101118

REACTIONS (4)
  - ABDOMINAL PAIN UPPER [None]
  - DIZZINESS [None]
  - DYSPNOEA [None]
  - OEDEMA PERIPHERAL [None]
